FAERS Safety Report 7638921-9 (Version None)
Quarter: 2011Q3

REPORT INFORMATION
  Report Type: 
  Country: None (occurrence: None)
  Receive Date: 20110714
  Receipt Date: 20110419
  Transmission Date: 20111222
  Serious: Yes (Other)
  Sender: FDA-Public Use
  Company Number: WWISSUE-588

PATIENT
  Sex: Male

DRUGS (1)
  1. LISINOPRIL [Suspect]
     Dates: start: 20110201, end: 20110301

REACTIONS (1)
  - BLOOD PRESSURE INCREASED [None]
